FAERS Safety Report 8379016-9 (Version None)
Quarter: 2012Q2

REPORT INFORMATION
  Report Type: 
  Country: None (occurrence: None)
  Receive Date: 20120522
  Receipt Date: 20120522
  Transmission Date: 20120825
  Serious: Yes (Life-Threatening)
  Sender: FDA-Public Use
  Company Number: None

PATIENT
  Age: 45 Year
  Sex: Female
  Weight: 72.5755 kg

DRUGS (1)
  1. CYMBALTA [Suspect]
     Indication: ANXIETY
     Dosage: 1 1X A DAY
     Dates: start: 20010101, end: 20120514

REACTIONS (7)
  - DRUG WITHDRAWAL SYNDROME [None]
  - GASTRIC DISORDER [None]
  - FEAR [None]
  - HEADACHE [None]
  - PARAESTHESIA [None]
  - GAIT DISTURBANCE [None]
  - DIZZINESS [None]
